FAERS Safety Report 16587835 (Version 1)
Quarter: 2019Q3

REPORT INFORMATION
  Report Type: Spontaneous
  Country: US (occurrence: US)
  Receive Date: 20190717
  Receipt Date: 20190717
  Transmission Date: 20191004
  Serious: Yes (Hospitalization)
  Sender: FDA-Public Use
  Company Number: US-NEUROCRINE BIOSCIENCES INC.-2019NBI01918

PATIENT
  Sex: Male

DRUGS (3)
  1. INGREZZA [Suspect]
     Active Substance: VALBENAZINE
     Dates: start: 201907
  2. INGREZZA [Suspect]
     Active Substance: VALBENAZINE
     Dates: start: 2019, end: 201907
  3. INGREZZA [Suspect]
     Active Substance: VALBENAZINE
     Indication: TARDIVE DYSKINESIA
     Dates: end: 2019

REACTIONS (2)
  - Pneumonia [Unknown]
  - Drooling [Unknown]

NARRATIVE: CASE EVENT DATE: 2019
